FAERS Safety Report 18891463 (Version 13)
Quarter: 2022Q4

REPORT INFORMATION
  Report Type: Other
  Country: CA (occurrence: CA)
  Receive Date: 20210215
  Receipt Date: 20221220
  Transmission Date: 20230112
  Serious: Yes (Hospitalization, Other)
  Sender: FDA-Public Use
  Company Number: CA-002147023-NVSC2019CA011384

PATIENT
  Age: 50 Year
  Sex: Female

DRUGS (20)
  1. XOLAIR [Suspect]
     Active Substance: OMALIZUMAB
     Indication: Chronic spontaneous urticaria
     Dosage: 300 MG, EVERY 4 WEEKS
     Route: 058
     Dates: start: 20190910
  2. XOLAIR [Suspect]
     Active Substance: OMALIZUMAB
     Indication: Urticarial vasculitis
     Dosage: 300 MG, EVERY 4 WEEKS
     Route: 058
     Dates: start: 20191008
  3. XOLAIR [Suspect]
     Active Substance: OMALIZUMAB
     Route: 058
     Dates: start: 20191105
  4. XOLAIR [Suspect]
     Active Substance: OMALIZUMAB
     Dosage: 300 MG, Q4W
     Route: 058
     Dates: start: 2019
  5. XOLAIR [Suspect]
     Active Substance: OMALIZUMAB
     Dosage: 300 MG, EVERY 4 WEEKS
     Route: 058
     Dates: start: 20191218
  6. XOLAIR [Suspect]
     Active Substance: OMALIZUMAB
     Dosage: 300 MG, Q4W
     Route: 058
     Dates: start: 20200131
  7. XOLAIR [Suspect]
     Active Substance: OMALIZUMAB
     Dosage: 300 MG, Q4W
     Route: 058
  8. XOLAIR [Suspect]
     Active Substance: OMALIZUMAB
     Dosage: 300 MG, Q4W
     Route: 065
     Dates: start: 20200423
  9. XOLAIR [Suspect]
     Active Substance: OMALIZUMAB
     Route: 058
  10. XOLAIR [Suspect]
     Active Substance: OMALIZUMAB
     Route: 058
  11. XOLAIR [Suspect]
     Active Substance: OMALIZUMAB
     Dosage: 300 MG, EVERY 4 WEEKS
     Route: 058
     Dates: start: 20210225
  12. XOLAIR [Suspect]
     Active Substance: OMALIZUMAB
     Dosage: 300 MG, EVERY 4 WEEKS
     Route: 058
     Dates: start: 20200124
  13. XOLAIR [Suspect]
     Active Substance: OMALIZUMAB
     Dosage: 300 MG, EVERY 3 WEEKS
     Route: 058
     Dates: start: 20210816
  14. XOLAIR [Suspect]
     Active Substance: OMALIZUMAB
     Dosage: 300 MG, EVERY 3 WEEKS
     Route: 058
     Dates: start: 20190909
  15. XOLAIR [Suspect]
     Active Substance: OMALIZUMAB
     Dosage: UNK
     Route: 065
     Dates: start: 20220602
  16. XOLAIR [Suspect]
     Active Substance: OMALIZUMAB
     Dosage: POWDER AND SOLVENT FOR SOLUTION FOR INJECTION
     Route: 065
  17. XOLAIR [Suspect]
     Active Substance: OMALIZUMAB
     Dosage: POWDER AND SOLVENT FOR SOLUTION FOR INJECTION
     Route: 065
     Dates: start: 20221027
  18. XOLAIR [Suspect]
     Active Substance: OMALIZUMAB
     Dosage: 300 MG, EVERY 3 WEEKS
     Route: 058
     Dates: start: 20221117
  19. EPINEPHRINE [Suspect]
     Active Substance: EPINEPHRINE
     Indication: Product used for unknown indication
     Dosage: UNK
     Route: 030
  20. CROMOLYN SODIUM [Suspect]
     Active Substance: CROMOLYN SODIUM
     Indication: Product used for unknown indication
     Dosage: UNK
     Route: 065

REACTIONS (26)
  - Carpal tunnel syndrome [Unknown]
  - Urticarial vasculitis [Not Recovered/Not Resolved]
  - Chest discomfort [Unknown]
  - Contusion [Unknown]
  - Heart rate increased [Unknown]
  - Blood pressure systolic increased [Unknown]
  - Pain [Unknown]
  - Burning sensation [Unknown]
  - Hypoaesthesia oral [Unknown]
  - Throat irritation [Unknown]
  - Limb discomfort [Unknown]
  - Nodule [Unknown]
  - Mobility decreased [Unknown]
  - Neck pain [Unknown]
  - Stress [Unknown]
  - Blister [Unknown]
  - Migraine [Unknown]
  - Paraesthesia oral [Unknown]
  - Weight decreased [Unknown]
  - Arthralgia [Not Recovered/Not Resolved]
  - Paraesthesia [Unknown]
  - Urticaria [Not Recovered/Not Resolved]
  - Alopecia [Recovering/Resolving]
  - Off label use [Unknown]
  - Inappropriate schedule of product administration [Unknown]
  - Therapeutic product effect decreased [Unknown]

NARRATIVE: CASE EVENT DATE: 20190101
